FAERS Safety Report 8483106-X (Version None)
Quarter: 2012Q3

REPORT INFORMATION
  Report Type: 
  Country: None (occurrence: None)
  Receive Date: 20120702
  Receipt Date: 20120621
  Transmission Date: 20120928
  Serious: Yes (Hospitalization)
  Sender: FDA-Public Use
  Company Number: US-BAYER-2012-062352

PATIENT
  Age: 38 Year
  Sex: Female
  Weight: 72.562 kg

DRUGS (1)
  1. BAYER AM EXTRA STRENGTH [Suspect]
     Indication: DYSMENORRHOEA
     Dosage: 20 U, UNK
     Route: 048

REACTIONS (4)
  - INSOMNIA [None]
  - NERVOUSNESS [None]
  - AGITATION [None]
  - TINNITUS [None]
